FAERS Safety Report 8143247-3 (Version None)
Quarter: 2012Q1

REPORT INFORMATION
  Report Type: 
  Country: None (occurrence: None)
  Receive Date: 20120217
  Receipt Date: 20120214
  Transmission Date: 20120608
  Serious: Yes (Other)
  Sender: FDA-Public Use
  Company Number: FR-PFIZER INC-2012040276

PATIENT
  Age: 2 Year
  Sex: Female

DRUGS (1)
  1. PEDIATRIC ADVIL [Suspect]
     Indication: PYREXIA
     Dosage: UNK
     Dates: start: 20120101, end: 20120101

REACTIONS (1)
  - HYPOTHERMIA [None]
